FAERS Safety Report 15758691 (Version 1)
Quarter: 2018Q4

REPORT INFORMATION
  Report Type: Spontaneous
  Country: DE (occurrence: DE)
  Receive Date: 20181225
  Receipt Date: 20181225
  Transmission Date: 20190205
  Serious: Yes (Hospitalization)
  Sender: FDA-Public Use
  Company Number: PHHY2018DE193124

PATIENT
  Age: 69 Year
  Sex: Male
  Weight: 82 kg

DRUGS (6)
  1. PACLITAXEL. [Suspect]
     Active Substance: PACLITAXEL
     Indication: PRODUCT USED FOR UNKNOWN INDICATION
     Dosage: 406 MG, UNK (FIRST LINE)
     Route: 065
     Dates: start: 20180724, end: 20180724
  2. PACLITAXEL. [Suspect]
     Active Substance: PACLITAXEL
     Dosage: 406 MG, UNK (FIRST LINE)
     Route: 065
     Dates: start: 20180905, end: 20180905
  3. PEMBROLIZUMAB. [Suspect]
     Active Substance: PEMBROLIZUMAB
     Indication: NON-SMALL CELL LUNG CANCER
     Dosage: 200 MG, UNK (FIRST LINE)
     Route: 065
     Dates: start: 20180724, end: 20180724
  4. PEMBROLIZUMAB. [Suspect]
     Active Substance: PEMBROLIZUMAB
     Dosage: 200 MG, UNK (FIRST LINE)
     Route: 065
     Dates: start: 20180905, end: 20180905
  5. CARBOPLATIN. [Suspect]
     Active Substance: CARBOPLATIN
     Dosage: 478.8 MG, UNK (FIRST LINE)
     Route: 065
     Dates: start: 20180905, end: 20180905
  6. CARBOPLATIN. [Suspect]
     Active Substance: CARBOPLATIN
     Indication: NON-SMALL CELL LUNG CANCER
     Dosage: 478.8 MG, UNK (FIRST LINE)
     Route: 065
     Dates: start: 20180724, end: 20180724

REACTIONS (3)
  - Pneumonia [Recovered/Resolved]
  - Pulmonary embolism [Recovering/Resolving]
  - Infectious pleural effusion [Recovered/Resolved with Sequelae]

NARRATIVE: CASE EVENT DATE: 20180911
